FAERS Safety Report 25651359 (Version 3)
Quarter: 2025Q3

REPORT INFORMATION
  Report Type: Report from Study
  Country: US (occurrence: US)
  Receive Date: 20250806
  Receipt Date: 20250917
  Transmission Date: 20251020
  Serious: Yes (Hospitalization, Other)
  Sender: TAKEDA
  Company Number: US-TAKEDA-2025TUS032870

PATIENT
  Sex: Female
  Weight: 98 kg

DRUGS (22)
  1. HUMAN IMMUNOGLOBULIN G [Suspect]
     Active Substance: HUMAN IMMUNOGLOBULIN G
     Indication: IgG deficiency
     Dosage: 22 GRAM, Q4WEEKS
  2. ACETAMINOPHEN [Concomitant]
     Active Substance: ACETAMINOPHEN
  3. EPINEPHRINE [Concomitant]
     Active Substance: EPINEPHRINE
  4. DILTIAZEM [Concomitant]
     Active Substance: DILTIAZEM
  5. OZEMPIC [Concomitant]
     Active Substance: SEMAGLUTIDE
  6. TRAZODONE HCL [Concomitant]
     Active Substance: TRAZODONE HYDROCHLORIDE
  7. SODIUM CHLORIDE [Concomitant]
     Active Substance: SODIUM CHLORIDE
  8. FLUTICASONE FUROATE\SALMETEROL XINAFOATE [Concomitant]
     Active Substance: FLUTICASONE FUROATE\SALMETEROL XINAFOATE
  9. PROTONIX [Concomitant]
     Active Substance: PANTOPRAZOLE SODIUM
  10. ZOLPIDEM TARTRATE [Concomitant]
     Active Substance: ZOLPIDEM TARTRATE
  11. ALBUTEROL SULFATE [Concomitant]
     Active Substance: ALBUTEROL SULFATE
  12. LIDOCAINE [Concomitant]
     Active Substance: LIDOCAINE
  13. MONTELUKAST SODIUM [Concomitant]
     Active Substance: MONTELUKAST SODIUM
  14. DIPHENHYDRAMINE HYDROCHLORIDE [Concomitant]
     Active Substance: DIPHENHYDRAMINE HYDROCHLORIDE
  15. CETIRIZINE HCL [Concomitant]
     Active Substance: CETIRIZINE HYDROCHLORIDE
  16. MAGNESIUM [Concomitant]
     Active Substance: MAGNESIUM
  17. TORSEMIDE [Concomitant]
     Active Substance: TORSEMIDE
  18. VITAMIN B [Concomitant]
     Active Substance: VITAMIN B
  19. BENZONATATE [Concomitant]
     Active Substance: BENZONATATE
  20. ASPIRIN [Concomitant]
     Active Substance: ASPIRIN
  21. ZYRTEC [Concomitant]
     Active Substance: CETIRIZINE HYDROCHLORIDE
  22. ADVAIR HFA [Concomitant]
     Active Substance: FLUTICASONE PROPIONATE\SALMETEROL XINAFOATE

REACTIONS (5)
  - Pneumonia [Unknown]
  - Atrial fibrillation [Unknown]
  - Viral infection [Unknown]
  - Urinary tract infection [Unknown]
  - Cough [Unknown]
